FAERS Safety Report 15878988 (Version 1)
Quarter: 2019Q1

REPORT INFORMATION
  Report Type: Spontaneous
  Country: US (occurrence: US)
  Receive Date: 20190104
  Receipt Date: 20190104
  Transmission Date: 20190417
  Serious: No
  Sender: FDA-Public Use
  Company Number: None

PATIENT
  Age: 82 Year
  Sex: Female

DRUGS (1)
  1. CAPECITABINE TAB 500MG [Suspect]
     Active Substance: CAPECITABINE
     Indication: COLON CANCER
     Dates: start: 20181109

REACTIONS (4)
  - Cough [None]
  - Respiratory disorder [None]
  - Sinus operation [None]
  - Alopecia [None]

NARRATIVE: CASE EVENT DATE: 20190103
